FAERS Safety Report 5205234-4 (Version None)
Quarter: 2007Q1

REPORT INFORMATION
  Report Type: 
  Country: None (occurrence: None)
  Receive Date: 20070110
  Receipt Date: 20070102
  Transmission Date: 20070707
  Serious: Yes (Other)
  Sender: FDA-Public Use
  Company Number: US-PFIZER INC-2007001314

PATIENT
  Sex: Female

DRUGS (2)
  1. NORVASC [Suspect]
     Indication: HYPERTENSION
     Route: 048
  2. NORVASC [Suspect]
     Dosage: DAILY DOSE:10MG
     Route: 048

REACTIONS (4)
  - ANAEMIA [None]
  - BREAST CANCER STAGE I [None]
  - COLON CANCER [None]
  - HYSTERECTOMY [None]
